FAERS Safety Report 9834215 (Version 1)
Quarter: 2014Q1

REPORT INFORMATION
  Report Type: Not Available
  Country: GB (occurrence: GB)
  Receive Date: 20140122
  Receipt Date: 20140122
  Transmission Date: 20141002
  Serious: Yes (Other)
  Sender: FDA-Public Use
  Company Number: GB-ASTELLAS-2014EU000382

PATIENT
  Age: 51 Year
  Sex: Female
  Weight: 98 kg

DRUGS (1)
  1. BETMIGA [Suspect]
     Dosage: 50 MG, UNKNOWN/D
     Route: 048
     Dates: start: 20131029, end: 20140103

REACTIONS (1)
  - Breast tenderness [Unknown]
